FAERS Safety Report 4874885-9 (Version None)
Quarter: 2006Q1

REPORT INFORMATION
  Report Type: 
  Country: None (occurrence: None)
  Receive Date: 20060104
  Receipt Date: 20051220
  Transmission Date: 20060701
  Serious: Yes (Other)
  Sender: FDA-Public Use
  Company Number: 220534

PATIENT
  Age: 57 Year
  Sex: Female

DRUGS (1)
  1. HERCEPTIN [Suspect]
     Indication: BREAST CANCER METASTATIC
     Dates: start: 19980101

REACTIONS (3)
  - DIALYSIS [None]
  - HEPATITIS ALCOHOLIC [None]
  - RENAL FAILURE [None]
